FAERS Safety Report 7235725-6 (Version None)
Quarter: 2011Q1

REPORT INFORMATION
  Report Type: 
  Country: None (occurrence: None)
  Receive Date: 20110120
  Receipt Date: 20110111
  Transmission Date: 20110831
  Serious: Yes (Other)
  Sender: FDA-Public Use
  Company Number: PHHY2011JP02623

PATIENT
  Age: 65 Year
  Sex: Male

DRUGS (3)
  1. CARBOPLATIN [Concomitant]
     Dosage: 500 MG
     Route: 042
     Dates: start: 20100727, end: 20101130
  2. ZOMETA [Suspect]
     Indication: METASTASES TO BONE
     Dosage: 4 MG
     Route: 041
     Dates: start: 20100705, end: 20101122
  3. AVASTIN [Concomitant]
     Route: 042
     Dates: start: 20100727, end: 20101228

REACTIONS (4)
  - OSTEONECROSIS OF JAW [None]
  - SWELLING [None]
  - TOOTH LOSS [None]
  - TOOTHACHE [None]
